FAERS Safety Report 10748678 (Version 3)
Quarter: 2015Q3

REPORT INFORMATION
  Report Type: Report from Study
  Country: US (occurrence: US)
  Receive Date: 20150129
  Receipt Date: 20150720
  Transmission Date: 20151125
  Serious: Yes (Other)
  Sender: FDA-Public Use
  Company Number: US-SA-2015SA000543

PATIENT
  Age: 31 Year
  Sex: Female

DRUGS (4)
  1. AUBAGIO [Suspect]
     Active Substance: TERIFLUNOMIDE
     Indication: MULTIPLE SCLEROSIS
     Route: 048
     Dates: start: 20141222, end: 20150701
  2. CYMBALTA [Concomitant]
     Active Substance: DULOXETINE HYDROCHLORIDE
  3. EFFEXOR [Concomitant]
     Active Substance: VENLAFAXINE HYDROCHLORIDE
  4. AUBAGIO [Suspect]
     Active Substance: TERIFLUNOMIDE
     Indication: MULTIPLE SCLEROSIS
     Route: 048
     Dates: start: 20150707

REACTIONS (22)
  - Road traffic accident [Unknown]
  - Injury [Unknown]
  - Micturition urgency [Unknown]
  - Balance disorder [Unknown]
  - Ligament sprain [Unknown]
  - Dyskinesia [Unknown]
  - Pain [Not Recovered/Not Resolved]
  - Neuropathy peripheral [Unknown]
  - Temperature intolerance [Unknown]
  - Speech disorder [Unknown]
  - Blepharospasm [Unknown]
  - Fatigue [Unknown]
  - Dizziness [Unknown]
  - Condition aggravated [Unknown]
  - Muscle strain [Unknown]
  - Influenza like illness [Unknown]
  - Sensory loss [Unknown]
  - Spinal compression fracture [Unknown]
  - Headache [Unknown]
  - Pollakiuria [Unknown]
  - Muscular weakness [Unknown]
  - Chest discomfort [Unknown]

NARRATIVE: CASE EVENT DATE: 201412
